APPROVED DRUG PRODUCT: MEDROL
Active Ingredient: METHYLPREDNISOLONE ACETATE
Strength: 40MG/BOT
Dosage Form/Route: ENEMA;RECTAL
Application: N018102 | Product #001
Applicant: PHARMACIA AND UPJOHN CO
Approved: Approved Prior to Jan 1, 1982 | RLD: No | RS: No | Type: DISCN